FAERS Safety Report 16917068 (Version 1)
Quarter: 2019Q4

REPORT INFORMATION
  Report Type: Spontaneous
  Country: JP (occurrence: JP)
  Receive Date: 20191015
  Receipt Date: 20191015
  Transmission Date: 20200122
  Serious: Yes (Death, Other)
  Sender: FDA-Public Use
  Company Number: JP-SUN PHARMACEUTICAL INDUSTRIES LTD-2019RR-223574

PATIENT
  Age: 48 Year
  Sex: Female

DRUGS (3)
  1. GEMCITABINE. [Suspect]
     Active Substance: GEMCITABINE
     Indication: OVARIAN CANCER
     Dosage: 1000 MILLIGRAM/SQ. METER, 1 DOSE/3 WEEKS
     Route: 065
  2. PACLITAXEL. [Suspect]
     Active Substance: PACLITAXEL
     Indication: OVARIAN CANCER
     Dosage: 180 MILLIGRAM/SQ. METER, 6 MONTHLY
     Route: 065
  3. CARBOPLATIN. [Suspect]
     Active Substance: CARBOPLATIN
     Indication: OVARIAN CANCER
     Dosage: UNK UNK, 1 DOSE/3 WEEKS
     Route: 065

REACTIONS (2)
  - Drug ineffective [Fatal]
  - Disease progression [Fatal]
